FAERS Safety Report 22379275 (Version 1)
Quarter: 2023Q2

REPORT INFORMATION
  Report Type: Spontaneous
  Country: US (occurrence: US)
  Receive Date: 20230529
  Receipt Date: 20230529
  Transmission Date: 20230721
  Serious: Yes (Other)
  Sender: FDA-Public Use
  Company Number: US-APOTEX-2023AP008411

PATIENT
  Age: 17 Year
  Sex: Female

DRUGS (1)
  1. DIPHENHYDRAMINE [Suspect]
     Active Substance: DIPHENHYDRAMINE
     Indication: Product used for unknown indication
     Dosage: UNK, 300-350 MILLIGRAM
     Route: 048

REACTIONS (9)
  - Urinary retention [Recovering/Resolving]
  - Overdose [Recovering/Resolving]
  - Abnormal behaviour [Recovering/Resolving]
  - Dysarthria [Recovering/Resolving]
  - Paranoia [Recovering/Resolving]
  - Mucosal dryness [Recovering/Resolving]
  - Toxicity to various agents [Recovering/Resolving]
  - Mydriasis [Recovering/Resolving]
  - Tachycardia [Recovering/Resolving]
